FAERS Safety Report 7493853-4 (Version None)
Quarter: 2011Q2

REPORT INFORMATION
  Report Type: 
  Country: None (occurrence: None)
  Receive Date: 20110520
  Receipt Date: 20110513
  Transmission Date: 20111010
  Serious: Yes (Hospitalization)
  Sender: FDA-Public Use
  Company Number: GR-SANOFI-AVENTIS-2011SA031195

PATIENT
  Age: 56 Year
  Sex: Female
  Weight: 85 kg

DRUGS (5)
  1. MEDROL [Suspect]
     Route: 048
     Dates: start: 20070101
  2. PLAQUENIL [Suspect]
     Route: 048
     Dates: start: 20090101
  3. NEORAL [Suspect]
     Route: 048
     Dates: start: 20070101
  4. MEDROL [Suspect]
     Route: 048
  5. THYROHORMONE [Concomitant]
     Indication: HYPOTHYROIDISM
     Dates: start: 19970101

REACTIONS (3)
  - PYREXIA [None]
  - URINARY TRACT INFECTION [None]
  - URINARY TRACT PAIN [None]
